FAERS Safety Report 8166511-0 (Version None)
Quarter: 2012Q1

REPORT INFORMATION
  Report Type: 
  Country: None (occurrence: None)
  Receive Date: 20120227
  Receipt Date: 20111013
  Transmission Date: 20120608
  Serious: No
  Sender: FDA-Public Use
  Company Number: US-MYLANLABS-2011S1020964

PATIENT
  Age: 18 Year
  Sex: Female
  Weight: 63.5 kg

DRUGS (3)
  1. AMNESTEEM [Suspect]
     Indication: ACNE
     Route: 048
     Dates: start: 20110701, end: 20111005
  2. AMNESTEEM [Suspect]
  3. AMNESTEEM [Suspect]
     Route: 048
     Dates: start: 20110701, end: 20111005

REACTIONS (1)
  - MOOD SWINGS [None]
